FAERS Safety Report 25764927 (Version 1)
Quarter: 2025Q3

REPORT INFORMATION
  Report Type: Report from Study
  Country: GB (occurrence: GB)
  Receive Date: 20250905
  Receipt Date: 20250905
  Transmission Date: 20251020
  Serious: Yes (Other)
  Sender: TAKEDA
  Company Number: GB-TAKEDA-2024TUS019325

PATIENT
  Sex: Female

DRUGS (2)
  1. VEDOLIZUMAB [Suspect]
     Active Substance: VEDOLIZUMAB
     Indication: Colitis ulcerative
     Dosage: 108 MILLIGRAM, Q2WEEKS
  2. VEDOLIZUMAB [Suspect]
     Active Substance: VEDOLIZUMAB
     Dosage: 108 MILLIGRAM, Q2WEEKS
     Dates: start: 20240227

REACTIONS (15)
  - Lower respiratory tract infection [Unknown]
  - Injection site bruising [Unknown]
  - Injection site swelling [Unknown]
  - Alopecia [Unknown]
  - Hair texture abnormal [Unknown]
  - Injection site pain [Unknown]
  - Injection site haemorrhage [Unknown]
  - Therapeutic reaction time decreased [Unknown]
  - Wrong technique in product usage process [Unknown]
  - Injection site extravasation [Unknown]
  - Pain [Not Recovered/Not Resolved]
  - Abdominal pain upper [Unknown]
  - Diarrhoea [Unknown]
  - Pharyngeal disorder [Unknown]
  - Urinary tract infection [Unknown]
